FAERS Safety Report 5924198-9 (Version None)
Quarter: 2008Q4

REPORT INFORMATION
  Report Type: 
  Country: None (occurrence: None)
  Receive Date: 20081015
  Receipt Date: 20081006
  Transmission Date: 20090506
  Serious: Yes (Other)
  Sender: FDA-Public Use
  Company Number: 2008SP020341

PATIENT

DRUGS (2)
  1. VIRAFERONPEG [Suspect]
  2. REBETOL [Suspect]
     Indication: DRUG USE FOR UNKNOWN INDICATION

REACTIONS (1)
  - DEEP VEIN THROMBOSIS [None]
